FAERS Safety Report 5583419-5 (Version None)
Quarter: 2008Q1

REPORT INFORMATION
  Report Type: 
  Country: None (occurrence: None)
  Receive Date: 20080107
  Receipt Date: 20071227
  Transmission Date: 20080703
  Serious: Yes (Other)
  Sender: FDA-Public Use
  Company Number: US-PFIZER INC-2008000693

PATIENT
  Sex: Male
  Weight: 95.454 kg

DRUGS (5)
  1. CHANTIX [Suspect]
     Indication: SMOKING CESSATION THERAPY
  2. TOPAMAX [Concomitant]
  3. GLIMEPIRIDE [Concomitant]
     Indication: TYPE 2 DIABETES MELLITUS
  4. AMBIEN [Concomitant]
  5. PROZAC [Concomitant]

REACTIONS (1)
  - BLOOD GLUCOSE INCREASED [None]
